FAERS Safety Report 9847116 (Version 2)
Quarter: 2014Q1

REPORT INFORMATION
  Report Type: Spontaneous
  Country: US (occurrence: US)
  Receive Date: 20140127
  Receipt Date: 20140303
  Transmission Date: 20141002
  Serious: Yes (Hospitalization, Other)
  Sender: FDA-Public Use
  Company Number: US-FRI-1000053063

PATIENT
  Age: 78 Year
  Sex: Female

DRUGS (14)
  1. NAMENDA [Suspect]
     Indication: DEMENTIA
     Dosage: 5 MG
     Dates: start: 2012, end: 2012
  2. NAMENDA [Suspect]
     Dosage: 10 MG
     Dates: start: 2012, end: 2012
  3. NAMENDA [Suspect]
     Dosage: 5 MG IN AM, 10 MG IN PM
     Dates: start: 2012, end: 2012
  4. NAMENDA [Suspect]
     Indication: DEMENTIA
     Dosage: 20 MG
     Dates: start: 2012
  5. NAMENDA [Suspect]
     Indication: DEMENTIA
     Dosage: 10 MG IN AM, 5 MG IN PM
     Dates: end: 201305
  6. NAMENDA [Suspect]
     Indication: DEMENTIA
     Dosage: 10 MG
     Dates: start: 201305, end: 201401
  7. NAMENDA [Suspect]
     Dosage: 5 MG
     Dates: start: 201401
  8. NEUPRO [Concomitant]
     Indication: PARKINSON^S DISEASE
     Route: 062
     Dates: start: 201307
  9. CARBIDOPA/ LEVODOPA ER [Concomitant]
     Indication: PARKINSON^S DISEASE
  10. WARFARIN [Concomitant]
     Indication: ANTICOAGULANT THERAPY
     Dosage: 6 MG
  11. MIDODRINE [Concomitant]
     Indication: HYPOTENSION
     Dosage: 2.5 MG
  12. OMEPRAZOLE [Concomitant]
     Indication: GASTROOESOPHAGEAL REFLUX DISEASE
  13. SEROQUEL [Concomitant]
     Indication: INSOMNIA
  14. ZOLOFT [Concomitant]
     Indication: DEPRESSION
     Dosage: 50 MG

REACTIONS (6)
  - Catatonia [Recovering/Resolving]
  - Dehydration [Recovered/Resolved]
  - Urinary tract infection [Recovered/Resolved]
  - Dyskinesia [Recovered/Resolved]
  - Somnolence [Recovered/Resolved]
  - Nasopharyngitis [Recovered/Resolved]
